FAERS Safety Report 25014244 (Version 1)
Quarter: 2025Q1

REPORT INFORMATION
  Report Type: Spontaneous
  Country: US (occurrence: None)
  Receive Date: 20250226
  Receipt Date: 20250226
  Transmission Date: 20250409
  Serious: Yes (Hospitalization)
  Sender: FDA-CTU
  Company Number: None

PATIENT
  Sex: Female

DRUGS (11)
  1. AMBRISENTAN [Suspect]
     Active Substance: AMBRISENTAN
     Indication: Pulmonary arterial hypertension
     Dosage: FREQUENCY : DAILY;?
     Route: 048
     Dates: start: 20211111
  2. AMBRISENTAN [Concomitant]
     Active Substance: AMBRISENTAN
  3. AMBRISENTAN [Concomitant]
     Active Substance: AMBRISENTAN
  4. DULOXETINE CAP 60MG [Concomitant]
  5. ERYTHROMYCIN OIN 5MG/GM [Concomitant]
  6. FUROSEMIDE [Concomitant]
     Active Substance: FUROSEMIDE
  7. LEVOTHYROXIN TAB 100MCG [Concomitant]
  8. LEVOTHYROXIN TAB 112MCG [Concomitant]
  9. LIOTHYRONI NE TAB 25MCG [Concomitant]
  10. METHYLPHENID TAB 10MG [Concomitant]
  11. METHYLPHENID TAB 10MG [Concomitant]

REACTIONS (4)
  - Fluid retention [None]
  - Angina pectoris [None]
  - Pain in jaw [None]
  - Therapy interrupted [None]
